FAERS Safety Report 4381257-2 (Version None)
Quarter: 2004Q2

REPORT INFORMATION
  Report Type: 
  Country: None (occurrence: None)
  Receive Date: 20040621
  Receipt Date: 20040610
  Transmission Date: 20050107
  Serious: Yes (Hospitalization)
  Sender: FDA-Public Use
  Company Number: US-BRISTOL-MYERS SQUIBB COMPANY-12611349

PATIENT
  Age: 71 Year
  Sex: Male
  Weight: 99 kg

DRUGS (12)
  1. PACLITAXEL [Suspect]
     Indication: BLADDER CANCER
     Route: 042
     Dates: start: 20040519, end: 20040519
  2. CARBOPLATIN [Suspect]
     Indication: BLADDER CANCER
     Route: 042
     Dates: start: 20040519, end: 20040519
  3. GEMCITABINE [Suspect]
     Indication: BLADDER CANCER
     Route: 042
     Dates: start: 20040526, end: 20040526
  4. LISINOPRIL [Concomitant]
  5. LIPITOR [Concomitant]
  6. ATENOLOL [Concomitant]
  7. SYNTHROID [Concomitant]
  8. ACTOS [Concomitant]
  9. NITROFURANTOIN [Concomitant]
  10. MILK OF MAGNESIA TAB [Concomitant]
  11. TYLENOL [Concomitant]
  12. IBUPROFEN [Concomitant]

REACTIONS (1)
  - DIVERTICULITIS [None]
